FAERS Safety Report 14992299 (Version 1)
Quarter: 2018Q2

REPORT INFORMATION
  Report Type: Other
  Country: US (occurrence: US)
  Receive Date: 20180608
  Receipt Date: 20180608
  Transmission Date: 20180711
  Serious: Yes (Hospitalization)
  Sender: FDA-Public Use
  Company Number: US-ALSI-201800376

PATIENT
  Age: 62 Year
  Sex: Male

DRUGS (1)
  1. NITROUS OXIDE. [Suspect]
     Active Substance: NITROUS OXIDE
     Indication: GENERAL ANAESTHESIA
     Route: 055

REACTIONS (1)
  - Subacute combined cord degeneration [Recovered/Resolved with Sequelae]

NARRATIVE: CASE EVENT DATE: 20180531
